FAERS Safety Report 21955584 (Version 3)
Quarter: 2024Q3

REPORT INFORMATION
  Report Type: Spontaneous
  Country: CA (occurrence: CA)
  Receive Date: 20230206
  Receipt Date: 20240709
  Transmission Date: 20241017
  Serious: Yes (Hospitalization, Other)
  Sender: BOEHRINGER INGELHEIM
  Company Number: CA-BoehringerIngelheim-2023-BI-215649

PATIENT
  Age: 59 Year
  Sex: Female

DRUGS (82)
  1. JARDIANCE [Suspect]
     Active Substance: EMPAGLIFLOZIN
     Indication: Tachycardia
  2. JARDIANCE [Suspect]
     Active Substance: EMPAGLIFLOZIN
     Indication: Rheumatoid arthritis
  3. JARDIANCE [Suspect]
     Active Substance: EMPAGLIFLOZIN
     Indication: Blood uric acid increased
  4. DULOXETINE HYDROCHLORIDE [Suspect]
     Active Substance: DULOXETINE HYDROCHLORIDE
     Indication: Product used for unknown indication
  5. LEFLUNOMIDE [Suspect]
     Active Substance: LEFLUNOMIDE
     Indication: Tachycardia
  6. LEFLUNOMIDE [Suspect]
     Active Substance: LEFLUNOMIDE
     Indication: Rheumatoid arthritis
     Route: 048
  7. LEFLUNOMIDE [Suspect]
     Active Substance: LEFLUNOMIDE
     Indication: Blood uric acid increased
  8. FOLIC ACID [Suspect]
     Active Substance: FOLIC ACID
     Indication: Tachycardia
  9. FOLIC ACID [Suspect]
     Active Substance: FOLIC ACID
     Indication: Rheumatoid arthritis
  10. FOLIC ACID [Suspect]
     Active Substance: FOLIC ACID
     Indication: Blood uric acid increased
  11. INDOMETHACIN [Suspect]
     Active Substance: INDOMETHACIN
     Indication: Tachycardia
     Route: 048
  12. INDOMETHACIN [Suspect]
     Active Substance: INDOMETHACIN
     Indication: Rheumatoid arthritis
  13. INDOMETHACIN [Suspect]
     Active Substance: INDOMETHACIN
     Indication: Blood uric acid increased
     Route: 048
  14. BISOPROLOL [Suspect]
     Active Substance: BISOPROLOL\BISOPROLOL FUMARATE
     Indication: Tachycardia
  15. BISOPROLOL [Suspect]
     Active Substance: BISOPROLOL\BISOPROLOL FUMARATE
     Indication: Rheumatoid arthritis
  16. BISOPROLOL [Suspect]
     Active Substance: BISOPROLOL\BISOPROLOL FUMARATE
     Indication: Blood uric acid increased
  17. ERELZI [Suspect]
     Active Substance: ETANERCEPT-SZZS
     Indication: Tachycardia
     Route: 058
  18. ERELZI [Suspect]
     Active Substance: ETANERCEPT-SZZS
     Indication: Rheumatoid arthritis
     Dosage: 1.0 DOSAGE FORMS
     Route: 058
  19. ERELZI [Suspect]
     Active Substance: ETANERCEPT-SZZS
     Indication: Blood uric acid increased
     Route: 058
  20. ERELZI [Suspect]
     Active Substance: ETANERCEPT-SZZS
     Dosage: NOT SPECIFIED / 1 DOSAGE FORM ONE WEEK
     Route: 058
  21. METFORMIN HYDROCHLORIDE [Suspect]
     Active Substance: METFORMIN HYDROCHLORIDE
     Indication: Tachycardia
  22. METFORMIN HYDROCHLORIDE [Suspect]
     Active Substance: METFORMIN HYDROCHLORIDE
     Indication: Rheumatoid arthritis
  23. METFORMIN HYDROCHLORIDE [Suspect]
     Active Substance: METFORMIN HYDROCHLORIDE
     Indication: Blood uric acid increased
  24. DULOXETINE [Suspect]
     Active Substance: DULOXETINE
     Indication: Tachycardia
  25. DULOXETINE [Suspect]
     Active Substance: DULOXETINE
     Indication: Rheumatoid arthritis
  26. DULOXETINE [Suspect]
     Active Substance: DULOXETINE
     Indication: Blood uric acid increased
  27. SYNJARDY [Concomitant]
     Active Substance: EMPAGLIFLOZIN\METFORMIN HYDROCHLORIDE
     Indication: Tachycardia
  28. SYNJARDY [Concomitant]
     Active Substance: EMPAGLIFLOZIN\METFORMIN HYDROCHLORIDE
     Indication: Rheumatoid arthritis
  29. SYNJARDY [Concomitant]
     Active Substance: EMPAGLIFLOZIN\METFORMIN HYDROCHLORIDE
     Indication: Blood uric acid increased
  30. LYRICA [Concomitant]
     Active Substance: PREGABALIN
     Indication: Tachycardia
  31. LYRICA [Concomitant]
     Active Substance: PREGABALIN
     Indication: Rheumatoid arthritis
  32. LYRICA [Concomitant]
     Active Substance: PREGABALIN
     Indication: Blood uric acid increased
  33. IBUPROFEN [Concomitant]
     Active Substance: IBUPROFEN
     Indication: Product used for unknown indication
     Dosage: 1 DF (DOSAGE FORM)
  34. IBUPROFEN [Concomitant]
     Active Substance: IBUPROFEN
     Indication: Tachycardia
     Dosage: 1.0 DOSAGE FORMS
     Route: 048
  35. IBUPROFEN [Concomitant]
     Active Substance: IBUPROFEN
     Indication: Rheumatoid arthritis
  36. IBUPROFEN [Concomitant]
     Active Substance: IBUPROFEN
     Indication: Blood uric acid increased
  37. CELEBREX [Concomitant]
     Active Substance: CELECOXIB
     Indication: Osteoarthritis
     Route: 048
  38. CELEBREX [Concomitant]
     Active Substance: CELECOXIB
     Indication: Tachycardia
     Route: 048
  39. CELEBREX [Concomitant]
     Active Substance: CELECOXIB
     Indication: Rheumatoid arthritis
  40. CELEBREX [Concomitant]
     Active Substance: CELECOXIB
     Indication: Blood uric acid increased
  41. TYLENOL ARTHRITIS PAIN [Concomitant]
     Active Substance: ACETAMINOPHEN
     Indication: Tachycardia
     Dosage: 4 DF
  42. TYLENOL ARTHRITIS PAIN [Concomitant]
     Active Substance: ACETAMINOPHEN
     Indication: Rheumatoid arthritis
     Dosage: 2.0 DF?TABLET (EXTENDED-RELEASE)
  43. TYLENOL ARTHRITIS PAIN [Concomitant]
     Active Substance: ACETAMINOPHEN
     Indication: Blood uric acid increased
     Dosage: 6 DF
  44. TYLENOL ARTHRITIS PAIN [Concomitant]
     Active Substance: ACETAMINOPHEN
     Dosage: 6 DOSAGE FORM, 1 DAY
     Route: 065
  45. TYLENOL ARTHRITIS PAIN [Concomitant]
     Active Substance: ACETAMINOPHEN
     Dosage: TYLENOL ARTHRITIS PAIN 8H, TABLET (EXTENDED- RELEASE) 2 DOSAGE FORM. 8 HOUR
     Route: 065
  46. TYLENOL ARTHRITIS PAIN [Concomitant]
     Active Substance: ACETAMINOPHEN
     Dosage: 4 DOSAGE FORM, 1 DAY
     Route: 065
  47. CYANOCOBALAMIN [Concomitant]
     Active Substance: CYANOCOBALAMIN
     Indication: Product used for unknown indication
     Dosage: UNK,
     Route: 065
  48. FERROUS GLUCONATE [Concomitant]
     Active Substance: FERROUS GLUCONATE
     Indication: Tachycardia
  49. FERROUS GLUCONATE [Concomitant]
     Active Substance: FERROUS GLUCONATE
     Indication: Rheumatoid arthritis
     Dosage: 8 HOUR
  50. FERROUS GLUCONATE [Concomitant]
     Active Substance: FERROUS GLUCONATE
     Indication: Blood uric acid increased
  51. PANTOPRAZOLE SODIUM [Concomitant]
     Active Substance: PANTOPRAZOLE SODIUM
     Indication: Product used for unknown indication
  52. PANTOPRAZOLE SODIUM [Concomitant]
     Active Substance: PANTOPRAZOLE SODIUM
     Dosage: DAILY
     Route: 061
  53. PERINDOPRIL ARGININE [Concomitant]
     Active Substance: PERINDOPRIL ARGININE
     Indication: Tachycardia
     Dosage: (ORALLY DISINTEGRATING)
     Route: 048
  54. PERINDOPRIL ARGININE [Concomitant]
     Active Substance: PERINDOPRIL ARGININE
     Indication: Rheumatoid arthritis
  55. PERINDOPRIL ARGININE [Concomitant]
     Active Substance: PERINDOPRIL ARGININE
     Indication: Blood uric acid increased
  56. PANTOPRAZOLE SODIUM [Concomitant]
     Active Substance: PANTOPRAZOLE SODIUM
     Indication: Tachycardia
     Dosage: (ENTERIC- COATED)
  57. PANTOPRAZOLE SODIUM [Concomitant]
     Active Substance: PANTOPRAZOLE SODIUM
     Indication: Rheumatoid arthritis
  58. PANTOPRAZOLE SODIUM [Concomitant]
     Active Substance: PANTOPRAZOLE SODIUM
     Indication: Blood uric acid increased
  59. ALLOPURINOL [Concomitant]
     Active Substance: ALLOPURINOL
     Indication: Tachycardia
     Dosage: 1 DF
  60. ALLOPURINOL [Concomitant]
     Active Substance: ALLOPURINOL
     Indication: Rheumatoid arthritis
  61. ALLOPURINOL [Concomitant]
     Active Substance: ALLOPURINOL
     Indication: Blood uric acid increased
  62. PERINDOPRIL ERBUMINE [Concomitant]
     Active Substance: PERINDOPRIL ERBUMINE
     Indication: Product used for unknown indication
  63. PERINDOPRIL ERBUMINE [Concomitant]
     Active Substance: PERINDOPRIL ERBUMINE
     Dosage: DAILY
     Route: 065
  64. PRAVACHOL [Concomitant]
     Active Substance: PRAVASTATIN SODIUM
     Indication: Tachycardia
  65. PRAVACHOL [Concomitant]
     Active Substance: PRAVASTATIN SODIUM
     Indication: Rheumatoid arthritis
  66. PRAVACHOL [Concomitant]
     Active Substance: PRAVASTATIN SODIUM
     Indication: Blood uric acid increased
  67. SULFASALAZINE [Concomitant]
     Active Substance: SULFASALAZINE
     Indication: Tachycardia
  68. SULFASALAZINE [Concomitant]
     Active Substance: SULFASALAZINE
     Indication: Rheumatoid arthritis
  69. SULFASALAZINE [Concomitant]
     Active Substance: SULFASALAZINE
     Indication: Blood uric acid increased
  70. METHOTREXATE [Concomitant]
     Active Substance: METHOTREXATE
     Indication: Tachycardia
     Route: 058
  71. METHOTREXATE [Concomitant]
     Active Substance: METHOTREXATE
     Indication: Rheumatoid arthritis
     Route: 048
  72. METHOTREXATE [Concomitant]
     Active Substance: METHOTREXATE
     Indication: Blood uric acid increased
     Route: 058
  73. METHOTREXATE [Concomitant]
     Active Substance: METHOTREXATE
     Dosage: NOT SPECIFIED
     Route: 048
  74. DICLOFENAC [Concomitant]
     Active Substance: DICLOFENAC
     Indication: Tachycardia
     Route: 048
  75. DICLOFENAC [Concomitant]
     Active Substance: DICLOFENAC
     Indication: Rheumatoid arthritis
     Route: 061
  76. DICLOFENAC [Concomitant]
     Active Substance: DICLOFENAC
     Indication: Blood uric acid increased
  77. VITAMIN B12 [Concomitant]
     Active Substance: CYANOCOBALAMIN
     Indication: Tachycardia
  78. VITAMIN B12 [Concomitant]
     Active Substance: CYANOCOBALAMIN
     Indication: Rheumatoid arthritis
  79. VITAMIN B12 [Concomitant]
     Active Substance: CYANOCOBALAMIN
     Indication: Blood uric acid increased
  80. NAPROXEN [Concomitant]
     Active Substance: NAPROXEN
     Indication: Tachycardia
     Route: 048
  81. NAPROXEN [Concomitant]
     Active Substance: NAPROXEN
     Indication: Rheumatoid arthritis
  82. NAPROXEN [Concomitant]
     Active Substance: NAPROXEN
     Indication: Blood uric acid increased

REACTIONS (35)
  - Arthritis [Unknown]
  - Blood uric acid increased [Unknown]
  - Vitamin B12 decreased [Unknown]
  - Tendonitis [Unknown]
  - Device issue [Unknown]
  - Injection site warmth [Unknown]
  - Synovitis [Unknown]
  - Rash [Unknown]
  - Osteoarthritis [Unknown]
  - Urinary tract infection [Unknown]
  - Antinuclear antibody positive [Unknown]
  - Blood iron decreased [Unknown]
  - Joint effusion [Unknown]
  - Pain in extremity [Unknown]
  - Allergic sinusitis [Unknown]
  - Condition aggravated [Unknown]
  - Injection site pain [Unknown]
  - C-reactive protein increased [Unknown]
  - Psoriasis [Unknown]
  - Arthralgia [Unknown]
  - Sepsis [Unknown]
  - Alanine aminotransferase increased [Unknown]
  - Pain [Unknown]
  - Synovial disorder [Unknown]
  - Hepatic enzyme increased [Unknown]
  - Oedema [Unknown]
  - Renal disorder [Unknown]
  - Pyrexia [Unknown]
  - Arthropathy [Unknown]
  - Cyst [Unknown]
  - Nephrolithiasis [Unknown]
  - Joint swelling [Unknown]
  - Incorrect dose administered [Unknown]
  - Drug ineffective [Unknown]
  - Wrong technique in device usage process [Unknown]
